FAERS Safety Report 6428514-3 (Version None)
Quarter: 2009Q4

REPORT INFORMATION
  Report Type: 
  Country: None (occurrence: None)
  Receive Date: 20091102
  Receipt Date: 20091023
  Transmission Date: 20100525
  Serious: Yes (Other)
  Sender: FDA-Public Use
  Company Number: FABR-1000839

PATIENT
  Age: 24 Year
  Sex: Male

DRUGS (7)
  1. FABRAZYME [Suspect]
     Indication: FABRY'S DISEASE
     Dosage: 50 MG, Q2W, INTRAVENOUS
     Route: 042
     Dates: start: 20050702
  2. LOSARTIN () [Suspect]
  3. GABAPENTIN [Concomitant]
  4. CALCIUM CARBONATE [Concomitant]
  5. VITAMIN D [Concomitant]
  6. ASPIRIN [Concomitant]
  7. LOSARTAN (LOSARTAN) [Concomitant]

REACTIONS (7)
  - BRADYCARDIA [None]
  - CARDIAC HYPERTROPHY [None]
  - CEREBRAL INFARCTION [None]
  - HAEMODIALYSIS [None]
  - METABOLIC DISORDER [None]
  - MUSCULAR WEAKNESS [None]
  - RENAL FAILURE CHRONIC [None]
